FAERS Safety Report 5186557-4 (Version None)
Quarter: 2006Q4

REPORT INFORMATION
  Report Type: 
  Country: None (occurrence: None)
  Receive Date: 20061213
  Receipt Date: 20061129
  Transmission Date: 20070319
  Serious: No
  Sender: FDA-Public Use
  Company Number: 009286

PATIENT
  Age: 20 Year
  Sex: Female

DRUGS (3)
  1. CLARAVIS [Suspect]
     Indication: ACNE
     Dosage: 20 MG, ORAL; SEE IMAGE
     Route: 048
     Dates: start: 20060803, end: 20061027
  2. CLARAVIS [Suspect]
     Indication: ACNE
     Dosage: 20 MG, ORAL; SEE IMAGE
     Route: 048
     Dates: start: 20060610
  3. CELEBREX [Suspect]
     Indication: KNEE OPERATION
     Dosage: ORAL
     Route: 048
     Dates: start: 20061001

REACTIONS (2)
  - LIGAMENT INJURY [None]
  - LIVER FUNCTION TEST ABNORMAL [None]
